FAERS Safety Report 8361459-0 (Version None)
Quarter: 2012Q2

REPORT INFORMATION
  Report Type: 
  Country: None (occurrence: None)
  Receive Date: 20120514
  Receipt Date: 20120412
  Transmission Date: 20120825
  Serious: Yes (Hospitalization)
  Sender: FDA-Public Use
  Company Number: AG-2012-0065-ES

PATIENT
  Age: 77 Year
  Sex: Female

DRUGS (2)
  1. CHLORAMBUCIL (CHLORAMBUCIL) [Suspect]
     Indication: CHRONIC LYMPHOCYTIC LEUKAEMIA
     Dosage: 10 MG/M2 DAYS 1-7 EVERY 28 DAYS, ORAL
     Route: 048
     Dates: start: 20091202
  2. OFATUMMAB (OFATUMMAB) (INJECTION) [Suspect]
     Indication: CHRONIC LYMPHOCYTIC LEUKAEMIA
     Dosage: INTRAVENOUS 300MG ON DAY 1, 1000MG ON DAY 8 FOLLOWED BY 1000MG EVERY 28 DAYS, INTRAVENOUS (NOT OTHER
     Route: 042
     Dates: start: 20091202

REACTIONS (1)
  - COLON CANCER [None]
